FAERS Safety Report 16132115 (Version 3)
Quarter: 2019Q4

REPORT INFORMATION
  Report Type: Spontaneous
  Country: US (occurrence: US)
  Receive Date: 20190329
  Receipt Date: 20191107
  Transmission Date: 20200122
  Serious: No
  Sender: FDA-Public Use
  Company Number: US-GLAXOSMITHKLINE-US2019052544

PATIENT
  Sex: Female

DRUGS (2)
  1. NICOTINE GUM MEDICATED CHEWING-GUM [Suspect]
     Active Substance: NICOTINE
     Indication: SMOKING CESSATION THERAPY
     Dosage: UNK
     Route: 065
  2. EQUATE NICOTINE [Suspect]
     Active Substance: NICOTINE
     Indication: SMOKING CESSATION THERAPY
     Dosage: 21 MG, UNK
     Route: 062

REACTIONS (12)
  - Rash [Unknown]
  - Erythema [Unknown]
  - Application site urticaria [Unknown]
  - Swelling [Unknown]
  - Dermatitis allergic [Unknown]
  - Application site vesicles [Unknown]
  - Skin discolouration [Unknown]
  - Rash macular [Unknown]
  - Application site burn [Unknown]
  - Skin reaction [Unknown]
  - Dermatitis contact [Unknown]
  - Dry skin [Unknown]
